FAERS Safety Report 21243838 (Version 1)
Quarter: 2022Q3

REPORT INFORMATION
  Report Type: Spontaneous
  Country: US (occurrence: None)
  Receive Date: 20220822
  Receipt Date: 20220822
  Transmission Date: 20221027
  Serious: No
  Sender: FDA-Public Use
  Company Number: None

PATIENT
  Age: 76 Year
  Sex: Female
  Weight: 57.02 kg

DRUGS (7)
  1. LENALIDOMIDE [Suspect]
     Active Substance: LENALIDOMIDE
     Indication: Plasma cell myeloma
     Dosage: OTHER FREQUENCY : 14D ON 7D OFF;?
     Route: 048
     Dates: start: 202208, end: 202208
  2. ATORVASTATIN [Concomitant]
     Active Substance: ATORVASTATIN
  3. ESTRACE [Suspect]
     Active Substance: ESTRADIOL
  4. OSCAL [Concomitant]
     Active Substance: CALCIUM CARBONATE
  5. MINERALS\VITAMINS [Concomitant]
     Active Substance: MINERALS\VITAMINS
  6. XARELTO [Concomitant]
     Active Substance: RIVAROXABAN
  7. ZOLEDRONIC [Concomitant]
     Active Substance: ZOLEDRONIC ACID

REACTIONS (2)
  - Therapy interrupted [None]
  - Hepatic enzyme increased [None]
